FAERS Safety Report 6500358-3 (Version None)
Quarter: 2009Q4

REPORT INFORMATION
  Report Type: 
  Country: None (occurrence: None)
  Receive Date: 20091216
  Receipt Date: 20091203
  Transmission Date: 20100525
  Serious: Yes (Other)
  Sender: FDA-Public Use
  Company Number: US-ELI_LILLY_AND_COMPANY-US200912000799

PATIENT
  Age: 78 Year
  Sex: Male

DRUGS (14)
  1. OLANZAPINE [Suspect]
     Dosage: 1 D/F, UNK
  2. OLANZAPINE [Suspect]
     Dosage: 5 MG, DAILY (1/D)
  3. OLANZAPINE [Suspect]
     Dosage: 7.5 MG, EACH EVENING
  4. OLANZAPINE [Suspect]
     Dosage: 10 MG, UNK
  5. OLANZAPINE [Suspect]
     Dosage: 7.5 MG, UNK
  6. MIRTAZAPINE [Concomitant]
  7. BUPROPION HCL [Concomitant]
     Dosage: 200 MG, 2/D
  8. OXCARBAZEPINE [Concomitant]
     Dosage: 1 D/F, DAILY (1/D)
  9. OXCARBAZEPINE [Concomitant]
     Dosage: 300 MG, 2/D
  10. VALPROATE SODIUM [Concomitant]
  11. QUETIAPINE [Concomitant]
     Dosage: 25 MG, 2/D
  12. QUETIAPINE [Concomitant]
     Dosage: 50 MG, 2/D
  13. VENLAFAXINE [Concomitant]
     Dosage: 75 MG, UNK
  14. LAMOTRIGINE [Concomitant]
     Dosage: 25 MG, DAILY (1/D)

REACTIONS (8)
  - BRAIN SCAN ABNORMAL [None]
  - DEMENTIA WITH LEWY BODIES [None]
  - HYPOMANIA [None]
  - HYPONATRAEMIA [None]
  - IRRITABILITY [None]
  - LUMBAR SPINAL STENOSIS [None]
  - NORMAL PRESSURE HYDROCEPHALUS [None]
  - PARKINSONISM [None]
